FAERS Safety Report 8889280 (Version 7)
Quarter: 2012Q4

REPORT INFORMATION
  Report Type: 
  Country: US (occurrence: US)
  Receive Date: 20121106
  Receipt Date: 20121226
  Transmission Date: 20130627
  Serious: Yes (Hospitalization, Other)
  Sender: FDA-Public Use
  Company Number: US-BAYER-2012-113714

PATIENT
  Age: 41 Year
  Sex: Female
  Weight: 57.6 kg

DRUGS (9)
  1. MIRENA [Suspect]
     Dosage: 20 mcg/24hr, CONT
     Route: 015
     Dates: start: 20120222, end: 20121026
  2. DILANTIN [Concomitant]
  3. ADVAIR [Concomitant]
  4. ALBUTEROL [Concomitant]
  5. SPIRIVA [Concomitant]
  6. VENTOLIN [Concomitant]
  7. BUSHPHREN [Concomitant]
  8. SERGFUIL [Concomitant]
  9. HYDROXYPAM [Concomitant]

REACTIONS (16)
  - Pelvic inflammatory disease [Not Recovered/Not Resolved]
  - Post procedural haemorrhage [Not Recovered/Not Resolved]
  - Dyspareunia [Not Recovered/Not Resolved]
  - Medical device discomfort [None]
  - Procedural pain [None]
  - Genital haemorrhage [Not Recovered/Not Resolved]
  - Abdominal pain lower [Not Recovered/Not Resolved]
  - Back pain [Not Recovered/Not Resolved]
  - Vaginal haemorrhage [Not Recovered/Not Resolved]
  - Abdominal pain lower [None]
  - Benign breast neoplasm [None]
  - Uterine spasm [Not Recovered/Not Resolved]
  - Balance disorder [None]
  - Dizziness [None]
  - Nausea [None]
  - Gastrointestinal injury [None]
